FAERS Safety Report 7538375-7 (Version None)
Quarter: 2011Q2

REPORT INFORMATION
  Report Type: 
  Country: None (occurrence: None)
  Receive Date: 20110609
  Receipt Date: 20110602
  Transmission Date: 20111010
  Serious: Yes (Other)
  Sender: FDA-Public Use
  Company Number: JP-PFIZER INC-2011111833

PATIENT
  Age: 83 Year
  Sex: Male
  Weight: 40 kg

DRUGS (4)
  1. ESTRACYT [Suspect]
     Dosage: 156.7 MG/DAY
     Route: 048
     Dates: start: 20110329, end: 20110510
  2. MUCOSTA [Concomitant]
     Indication: PROPHYLAXIS
     Dosage: 100 MG/DAY
     Route: 048
     Dates: start: 20110329, end: 20110510
  3. ESTRACYT [Suspect]
     Indication: PROSTATE CANCER
     Dosage: 313.4 MG/DAY
     Route: 048
     Dates: start: 20110222, end: 20110328
  4. ZOLADEX [Concomitant]
     Indication: PROSTATE CANCER
     Dosage: 10.8 MG/12 WEEKS
     Route: 058
     Dates: start: 20091218

REACTIONS (1)
  - DECREASED APPETITE [None]
